FAERS Safety Report 6760422-0 (Version None)
Quarter: 2010Q2

REPORT INFORMATION
  Report Type: 
  Country: None (occurrence: None)
  Receive Date: 20100608
  Receipt Date: 20100526
  Transmission Date: 20101027
  Serious: Yes (Hospitalization, Other)
  Sender: FDA-Public Use
  Company Number: PHHY2010GB21650

PATIENT
  Sex: Female

DRUGS (7)
  1. CLOZARIL [Suspect]
     Indication: SCHIZOPHRENIA
     Dosage: 600MG/DAY
     Route: 048
     Dates: start: 20050831
  2. CLOZARIL [Suspect]
     Dosage: 400MG/DAY
     Route: 048
     Dates: start: 20100330
  3. CLOZARIL [Suspect]
     Dosage: 300MG/DAY
     Route: 048
     Dates: start: 20100331
  4. VIGABATRIN [Concomitant]
     Indication: EPILEPSY
     Dosage: 500 MG, BID
     Route: 048
  5. VALPROATE SODIUM [Concomitant]
     Indication: EPILEPSY
     Dosage: 500 MG, BID
     Route: 048
  6. TRAZODONE HCL [Concomitant]
     Dosage: 100 MG, QD
     Route: 048
  7. DIAZEPAM [Concomitant]
     Dosage: 5 MG, BID
     Route: 048

REACTIONS (8)
  - BLOOD COUNT ABNORMAL [None]
  - CONVULSION [None]
  - DRUG INEFFECTIVE [None]
  - LOWER RESPIRATORY TRACT INFECTION [None]
  - MALAISE [None]
  - PETIT MAL EPILEPSY [None]
  - PYREXIA [None]
  - SYNCOPE [None]
